FAERS Safety Report 10440563 (Version 1)
Quarter: 2014Q3

REPORT INFORMATION
  Report Type: Spontaneous
  Country: US (occurrence: None)
  Receive Date: 20140908
  Receipt Date: 20140908
  Transmission Date: 20150326
  Serious: Yes (Death)
  Sender: FDA-Public Use
  Company Number: None

PATIENT
  Age: 77 Year
  Sex: Female
  Weight: 84 kg

DRUGS (1)
  1. AMIODARONE [Suspect]
     Active Substance: AMIODARONE
     Indication: ATRIAL FIBRILLATION
     Dosage: CONTINOUS INFUSIO, INTRAVENOUS
     Route: 042
     Dates: start: 20140825, end: 20140826

REACTIONS (4)
  - Liver function test abnormal [None]
  - Hypoglycaemia [None]
  - Pulseless electrical activity [None]
  - Hypotension [None]

NARRATIVE: CASE EVENT DATE: 20140826
